FAERS Safety Report 4300458-2 (Version None)
Quarter: 2004Q1

REPORT INFORMATION
  Report Type: 
  Country: None (occurrence: None)
  Receive Date: 20040218
  Receipt Date: 20040206
  Transmission Date: 20041129
  Serious: Yes (Hospitalization)
  Sender: FDA-Public Use
  Company Number: WAES 0401USA01540

PATIENT
  Age: 73 Year
  Sex: Female

DRUGS (9)
  1. VIOXX [Suspect]
     Indication: LOCALISED OSTEOARTHRITIS
     Dosage: 25 MG DAILY PO; 25 MG/DAILY PO
     Route: 048
     Dates: start: 20031007, end: 20040108
  2. VIOXX [Suspect]
     Indication: LOCALISED OSTEOARTHRITIS
     Dosage: 25 MG DAILY PO; 25 MG/DAILY PO
     Route: 048
     Dates: start: 20040120, end: 20040120
  3. FOSAMAX [Concomitant]
  4. ALFACALCIDOL [Concomitant]
  5. APRINDINE HYDROCHLORIDE [Concomitant]
  6. CALCIUM (UNSPECIFIED) [Concomitant]
  7. NITRAZEPAM [Concomitant]
  8. PRAVASTATIN SODIUM [Concomitant]
  9. SPIRONOLACTONE [Concomitant]

REACTIONS (9)
  - ANGINA PECTORIS [None]
  - AORTIC VALVE STENOSIS [None]
  - ATRIAL FIBRILLATION [None]
  - CARDIAC FAILURE CONGESTIVE [None]
  - CARDIAC MURMUR [None]
  - CHEST PAIN [None]
  - DEHYDRATION [None]
  - DYSPNOEA [None]
  - RENAL IMPAIRMENT [None]
